FAERS Safety Report 13742591 (Version 1)
Quarter: 2017Q3

REPORT INFORMATION
  Report Type: Spontaneous
  Country: FR (occurrence: FR)
  Receive Date: 20170711
  Receipt Date: 20170711
  Transmission Date: 20171127
  Serious: Yes (Hospitalization)
  Sender: FDA-Public Use
  Company Number: PHHY2012FR112771

PATIENT
  Age: 60 Year
  Sex: Female

DRUGS (9)
  1. AZITHROMYCIN ANHYDROUS. [Concomitant]
     Active Substance: AZITHROMYCIN ANHYDROUS
     Dosage: 250 MG, DAILY
     Route: 048
     Dates: start: 20120917, end: 20121030
  2. CARTEOLOL [Suspect]
     Active Substance: CARTEOLOL
     Indication: EYE INFECTION TOXOPLASMAL
     Dosage: UNK, QAM
     Route: 047
     Dates: start: 20120917, end: 20121017
  3. CORTANCYL [Suspect]
     Active Substance: PREDNISONE
     Dosage: 20 MG, QD
     Route: 048
     Dates: start: 20121004, end: 20121007
  4. MALOCIDE [Concomitant]
     Active Substance: PYRIMETHAMINE
     Dosage: 50 MG, DAILY
     Route: 048
     Dates: start: 20120917, end: 20121030
  5. CORTANCYL [Suspect]
     Active Substance: PREDNISONE
     Dosage: 40 MG, QD
     Route: 048
     Dates: start: 20120917, end: 20120925
  6. CORTANCYL [Suspect]
     Active Substance: PREDNISONE
     Dosage: 30 MG, QD
     Route: 048
     Dates: start: 20120926, end: 20121003
  7. VEXOL [Concomitant]
     Active Substance: RIMEXOLONE
     Dosage: 1 GTT, (5 TIMES DAILY)
     Route: 047
     Dates: start: 20120917, end: 20121017
  8. CORTANCYL [Suspect]
     Active Substance: PREDNISONE
     Dosage: 10 MG, QD
     Route: 048
     Dates: start: 20121008, end: 20121010
  9. MYDRIATICUM [Concomitant]
     Active Substance: TROPICAMIDE
     Dosage: 1 GTT, BID
     Route: 047
     Dates: start: 20120917, end: 20120924

REACTIONS (7)
  - CSF protein increased [Unknown]
  - Idiopathic intracranial hypertension [Unknown]
  - Vision blurred [Unknown]
  - Visual acuity reduced [Unknown]
  - Papilloedema [Unknown]
  - Nausea [Unknown]
  - Headache [Unknown]

NARRATIVE: CASE EVENT DATE: 201209
